FAERS Safety Report 8517287-6 (Version None)
Quarter: 2012Q3

REPORT INFORMATION
  Report Type: 
  Country: None (occurrence: None)
  Receive Date: 20120718
  Receipt Date: 20120712
  Transmission Date: 20120928
  Serious: Yes (Hospitalization)
  Sender: FDA-Public Use
  Company Number: US-BAYER-2012-070919

PATIENT
  Age: 33 Year
  Sex: Female

DRUGS (9)
  1. ADVAIR DISKUS 100/50 [Concomitant]
     Indication: DYSPNOEA
     Dosage: 250/50 EVERY 6 HOURS
  2. VENTOLIN [Concomitant]
     Indication: DYSPNOEA
     Dosage: 2 PUFF(S), DAILY
  3. LEVAQUIN [Concomitant]
     Dosage: 750 MG, FOR 5 DAYS
  4. PREDNISONE [Concomitant]
     Dosage: 20 MG, 3 DAYS
  5. YAZ [Suspect]
  6. YASMIN [Suspect]
  7. SINGULAIR [Concomitant]
     Dosage: 10 MG, UNK
  8. PREDNISONE [Concomitant]
     Dosage: 60 MG, 3 DAYS
  9. PROMETHAZINE W/ CODEINE [Concomitant]
     Dosage: 6.25-10 SYRUP

REACTIONS (2)
  - PULMONARY EMBOLISM [None]
  - DEEP VEIN THROMBOSIS [None]
